FAERS Safety Report 7224796-9 (Version None)
Quarter: 2011Q1

REPORT INFORMATION
  Report Type: 
  Country: None (occurrence: None)
  Receive Date: 20110113
  Receipt Date: 20110101
  Transmission Date: 20110831
  Serious: Yes (Other)
  Sender: FDA-Public Use
  Company Number: US-SHIRE-ALL1-2011-00010

PATIENT
  Age: 13 Year
  Sex: Male
  Weight: 36.281 kg

DRUGS (1)
  1. VYVANSE [Suspect]
     Indication: ATTENTION DEFICIT/HYPERACTIVITY DISORDER
     Dosage: 50 MG, 1X/DAY:QD
     Route: 048
     Dates: start: 20090101

REACTIONS (2)
  - ANTINUCLEAR ANTIBODY POSITIVE [None]
  - RAYNAUD'S PHENOMENON [None]
